FAERS Safety Report 4393110-9 (Version None)
Quarter: 2004Q3

REPORT INFORMATION
  Report Type: 
  Country: None (occurrence: None)
  Receive Date: 20040706
  Receipt Date: 20040331
  Transmission Date: 20050211
  Serious: Yes (Death, Hospitalization)
  Sender: FDA-Public Use
  Company Number: JP-BRISTOL-MYERS SQUIBB COMPANY-12563029

PATIENT
  Age: 78 Year
  Sex: Male

DRUGS (4)
  1. GATIFLO TABS [Suspect]
     Indication: PYOTHORAX
     Route: 048
     Dates: start: 20040316, end: 20040322
  2. LONGES [Concomitant]
     Route: 048
     Dates: start: 20040316
  3. CARBENIN [Concomitant]
     Dates: start: 20040302, end: 20040316
  4. MINOMYCIN [Concomitant]
     Dates: start: 20040302, end: 20040308

REACTIONS (2)
  - HYPOGLYCAEMIA [None]
  - PNEUMONIA ASPIRATION [None]
